FAERS Safety Report 8592728-7 (Version None)
Quarter: 2012Q3

REPORT INFORMATION
  Report Type: 
  Country: None (occurrence: None)
  Receive Date: 20120814
  Receipt Date: 20120807
  Transmission Date: 20120928
  Serious: Yes (Other)
  Sender: FDA-Public Use
  Company Number: JP-VERTEX PHARMACEUTICALS INC.-AE-2012-009611

PATIENT
  Age: 60 Year
  Sex: Male

DRUGS (9)
  1. NESPO [Concomitant]
     Route: 058
     Dates: start: 20120702, end: 20120723
  2. RIBAVIRIN [Concomitant]
     Route: 048
     Dates: start: 20120625, end: 20120708
  3. GASMOTIN [Concomitant]
     Route: 048
     Dates: start: 20120501
  4. RIBAVIRIN [Concomitant]
     Route: 048
     Dates: start: 20120709
  5. TELAVIC [Suspect]
     Indication: HEPATITIS C
     Route: 048
     Dates: start: 20120501, end: 20120730
  6. RIBAVIRIN [Concomitant]
     Route: 048
     Dates: start: 20120501, end: 20120514
  7. RIBAVIRIN [Concomitant]
     Route: 048
     Dates: start: 20120529, end: 20120624
  8. PEGINTERFERON ALFA-2B [Concomitant]
     Route: 058
     Dates: start: 20120501
  9. RIBAVIRIN [Concomitant]
     Route: 048
     Dates: start: 20120515, end: 20120528

REACTIONS (2)
  - DECREASED APPETITE [None]
  - ANAEMIA [None]
